FAERS Safety Report 5609599-0 (Version None)
Quarter: 2008Q1

REPORT INFORMATION
  Report Type: 
  Country: None (occurrence: None)
  Receive Date: 20080131
  Receipt Date: 20080129
  Transmission Date: 20080703
  Serious: Yes (Death)
  Sender: FDA-Public Use
  Company Number: AU-BOEHRINGER INGELHEIM GMBH, GERMANY-2008-BP-01144AU

PATIENT
  Sex: Female

DRUGS (7)
  1. ASPIRIN AND DIPYRIDAMOLE [Suspect]
     Indication: TRANSIENT ISCHAEMIC ATTACK
     Route: 048
  2. AMIODARONE [Concomitant]
  3. ASTRIX [Concomitant]
  4. HIPREX [Concomitant]
  5. VAGIFEM [Concomitant]
     Route: 067
  6. ADT (DIPTERIA AND TETANUS VACCINE) [Concomitant]
     Indication: IMMUNISATION
     Dates: start: 20010424
  7. PNEUMOVAX 23 [Concomitant]
     Indication: IMMUNISATION
     Dates: start: 20020221

REACTIONS (1)
  - HAEMORRHAGE [None]
